FAERS Safety Report 11445510 (Version 1)
Quarter: 2015Q3

REPORT INFORMATION
  Report Type: Spontaneous
  Country: US (occurrence: None)
  Receive Date: 20150901
  Receipt Date: 20150901
  Transmission Date: 20151125
  Serious: Yes (Hospitalization)
  Sender: FDA-Public Use
  Company Number: None

PATIENT
  Age: 17 Year
  Sex: Female
  Weight: 79 kg

DRUGS (2)
  1. SEROQUEL XR [Suspect]
     Active Substance: QUETIAPINE FUMARATE
     Indication: POST-TRAUMATIC STRESS DISORDER
     Dosage: 400-XR?QHS?PO
     Route: 048
     Dates: start: 20150602
  2. PRAZOSIS [Concomitant]

REACTIONS (2)
  - Panic attack [None]
  - Psychogenic seizure [None]

NARRATIVE: CASE EVENT DATE: 20150804
